FAERS Safety Report 18839439 (Version 7)
Quarter: 2021Q1

REPORT INFORMATION
  Report Type: Other
  Country: GB (occurrence: GB)
  Receive Date: 20210203
  Receipt Date: 20210317
  Transmission Date: 20210419
  Serious: Yes (Other)
  Sender: FDA-Public Use
  Company Number: GB-CELLTRION INC.-2020GB022901

PATIENT

DRUGS (25)
  1. WATER FOR INJECTION [Suspect]
     Active Substance: WATER
     Dosage: UNK (DOSAGE FORM: 236)
     Route: 065
  2. REMSIMA [Suspect]
     Active Substance: INFLIXIMAB
     Dosage: 410 MG
     Route: 065
  3. WATER FOR INJECTION [Suspect]
     Active Substance: WATER
     Dosage: UNK (DOSAGE FORM: 236)
     Route: 065
  4. REMSIMA [Suspect]
     Active Substance: INFLIXIMAB
     Dosage: 400 MG
     Route: 065
  5. SODIUM CHLORIDE  0.9% SOLUTION [Suspect]
     Active Substance: SODIUM CHLORIDE
     Indication: MEDICATION DILUTION
     Dosage: UNK (DOSAGE FORM: 231)
     Route: 065
  6. WATER FOR INJECTION [Suspect]
     Active Substance: WATER
     Indication: MEDICATION DILUTION
     Dosage: UNK (DOSAGE FORM: 236)
     Route: 065
  7. SODIUM CHLORIDE 0.9% INTRAVENOUS INFUSION BP [Suspect]
     Active Substance: SODIUM CHLORIDE
     Indication: MEDICATION DILUTION
     Dosage: UNK (DOSAGE FORM: 231)
     Route: 065
  8. SODIUM CHLORIDE 0.9% INTRAVENOUS INFUSION BP [Suspect]
     Active Substance: SODIUM CHLORIDE
     Dosage: UNK (DOSAGE FORM: 231)
     Route: 065
  9. SODIUM CHLORIDE. [Suspect]
     Active Substance: SODIUM CHLORIDE
     Dosage: UNK (DOSAGE FORM: 231)
     Route: 065
  10. SODIUM CHLORIDE. [Suspect]
     Active Substance: SODIUM CHLORIDE
     Dosage: UNK (DOSAGE FORM: 231)
     Route: 065
  11. SODIUM CHLORIDE. [Suspect]
     Active Substance: SODIUM CHLORIDE
     Dosage: UNK (DOSAGE FORM: 231)
     Route: 065
  12. REMSIMA [Suspect]
     Active Substance: INFLIXIMAB
     Dosage: 410 MG
     Route: 065
  13. WATER FOR INJECTION [Suspect]
     Active Substance: WATER
     Dosage: UNK (DOSAGE FORM: 236)
     Route: 065
  14. SODIUM CHLORIDE. [Suspect]
     Active Substance: SODIUM CHLORIDE
     Dosage: UNK (DOSAGE FORM: 231)
     Route: 065
  15. SODIUM CHLORIDE  0.9% SOLUTION [Suspect]
     Active Substance: SODIUM CHLORIDE
     Dosage: UNK (DOSAGE FORM: 231)
     Route: 065
  16. WATER FOR INJECTION [Suspect]
     Active Substance: WATER
     Dosage: UNK (DOSAGE FORM: 236)
     Route: 065
  17. SODIUM CHLORIDE. [Suspect]
     Active Substance: SODIUM CHLORIDE
     Dosage: UNK (DOSAGE FORM: 231)
     Route: 065
  18. SODIUM CHLORIDE. [Suspect]
     Active Substance: SODIUM CHLORIDE
     Dosage: UNK (DOSAGE FORM: 231)
     Route: 065
  19. REMSIMA [Suspect]
     Active Substance: INFLIXIMAB
     Dosage: 410 MG
     Route: 065
  20. REMSIMA [Suspect]
     Active Substance: INFLIXIMAB
     Indication: PRODUCT USED FOR UNKNOWN INDICATION
     Dosage: 400 MG
     Route: 065
  21. WATER FOR INJECTION [Suspect]
     Active Substance: WATER
     Dosage: UNK (DOSAGE FORM: 236)
     Route: 065
  22. WATER FOR INJECTION [Suspect]
     Active Substance: WATER
     Dosage: UNK (DOSAGE FORM: 236)
     Route: 065
  23. WATER FOR INJECTION [Suspect]
     Active Substance: WATER
     Indication: MEDICATION DILUTION
     Dosage: UNK (DOSAGE FORM: 236)
     Route: 065
  24. SODIUM CHLORIDE. [Suspect]
     Active Substance: SODIUM CHLORIDE
     Dosage: UNK (DOSAGE FORM: 231)
     Route: 065
  25. SODIUM CHLORIDE. [Suspect]
     Active Substance: SODIUM CHLORIDE
     Indication: MEDICATION DILUTION
     Dosage: UNK (DOSAGE FORM: 231)
     Route: 065

REACTIONS (6)
  - Defaecation urgency [Unknown]
  - Haematochezia [Unknown]
  - Malaise [Unknown]
  - Oropharyngeal pain [Unknown]
  - Mucous stools [Unknown]
  - Drug specific antibody present [Unknown]

NARRATIVE: CASE EVENT DATE: 202012
